FAERS Safety Report 17849321 (Version 2)
Quarter: 2020Q2

REPORT INFORMATION
  Report Type: Spontaneous
  Country: US (occurrence: US)
  Receive Date: 20200602
  Receipt Date: 20200626
  Transmission Date: 20200714
  Serious: Yes (Hospitalization, Other)
  Sender: FDA-Public Use
  Company Number: US-AMGEN-USASP2020085208

PATIENT
  Age: 67 Year
  Sex: Female
  Weight: 35 kg

DRUGS (8)
  1. NAPROXEN. [Concomitant]
     Active Substance: NAPROXEN
     Indication: PAIN
     Dosage: 500 MILLIGRAM, BID, PRN PAIN
     Route: 048
  2. VITAMIN B12 [Concomitant]
     Active Substance: CYANOCOBALAMIN
     Dosage: 1000 MICROGRAM, QMO
     Route: 058
  3. ERGOCALCIFEROL. [Concomitant]
     Active Substance: ERGOCALCIFEROL
     Dosage: 50,000 UNITS, QWK
     Route: 048
  4. EVENITY [Suspect]
     Active Substance: ROMOSOZUMAB-AQQG
     Indication: OSTEOPOROSIS
     Dosage: 210 MILLIGRAM, QMO
     Route: 058
     Dates: start: 20191028
  5. RINVOQ [Suspect]
     Active Substance: UPADACITINIB
     Indication: RHEUMATOID ARTHRITIS
     Dosage: 15 MILLIGRAM, QD
     Route: 065
  6. FOLIC ACID. [Concomitant]
     Active Substance: FOLIC ACID
     Dosage: 1 MILLIGRAM, QD
     Route: 048
  7. XOPENEX [Concomitant]
     Active Substance: LEVALBUTEROL HYDROCHLORIDE
     Indication: WHEEZING
     Dosage: 0.64 MG/3ML NEB Q4H PRN WHEEZING
  8. OMEPRAZOLE. [Concomitant]
     Active Substance: OMEPRAZOLE
     Dosage: 40 MILLIGRAM, QD
     Route: 048

REACTIONS (14)
  - Basal ganglia haemorrhage [Not Recovered/Not Resolved]
  - Sinus disorder [Unknown]
  - White matter lesion [Unknown]
  - Red blood cell sedimentation rate increased [Unknown]
  - Lacunar infarction [Unknown]
  - Haematocrit decreased [Unknown]
  - Blood immunoglobulin A increased [Unknown]
  - Product dose omission [Unknown]
  - Haemoglobin decreased [Unknown]
  - Blood immunoglobulin G increased [Unknown]
  - Basal ganglia infarction [Unknown]
  - Electrocardiogram abnormal [Unknown]
  - High density lipoprotein increased [Unknown]
  - Rash [Unknown]

NARRATIVE: CASE EVENT DATE: 20191120
